FAERS Safety Report 8612925 (Version 2)
Quarter: 2013Q1

REPORT INFORMATION
  Report Type: Spontaneous
  Country: US (occurrence: US)
  Receive Date: 20120613
  Receipt Date: 20130319
  Transmission Date: 20140127
  Serious: Yes (Other)
  Sender: FDA-Public Use
  Company Number: CHPA2011US10894

PATIENT
  Age: 81 Year
  Sex: Male

DRUGS (1)
  1. 4 WAY MENTHOLATED NASAL SPRAY [Suspect]
     Indication: NASAL CONGESTION
     Dosage: 4 DF, Q12H
     Route: 045
     Dates: start: 2010

REACTIONS (5)
  - Bronchitis [Unknown]
  - Anxiety [Unknown]
  - Sinus disorder [Unknown]
  - Therapeutic response unexpected [Unknown]
  - Incorrect drug administration duration [Unknown]
